FAERS Safety Report 9276326 (Version 1)
Quarter: 2012Q4

REPORT INFORMATION
  Report Type: Spontaneous
  Country: US (occurrence: None)
  Receive Date: 20121109
  Receipt Date: 20121109
  Transmission Date: 20130627
  Serious: Yes (Death)
  Sender: FDA-Public Use
  Company Number: 2012S1000868

PATIENT
  Age: 82 Year
  Sex: Female
  Weight: 59.2 kg

DRUGS (1)
  1. CUBICIN [Suspect]
     Indication: SKIN INFECTION
     Dates: start: 20070315, end: 20070401

REACTIONS (1)
  - Death [None]
